FAERS Safety Report 19801401 (Version 1)
Quarter: 2021Q3

REPORT INFORMATION
  Report Type: Spontaneous
  Country: JP (occurrence: JP)
  Receive Date: 20210907
  Receipt Date: 20210907
  Transmission Date: 20211014
  Serious: Yes (Other)
  Sender: FDA-Public Use
  Company Number: JP-GILEAD-2021-0547222

PATIENT
  Age: 56 Year
  Sex: Male

DRUGS (2)
  1. HEPSERA [Suspect]
     Active Substance: ADEFOVIR DIPIVOXIL
     Indication: CHRONIC HEPATITIS B
     Dosage: UNK
     Route: 065
  2. HEPSERA [Suspect]
     Active Substance: ADEFOVIR DIPIVOXIL
     Indication: HEPATOCELLULAR CARCINOMA

REACTIONS (8)
  - Metabolic acidosis [Unknown]
  - Fanconi syndrome [Unknown]
  - Back pain [Unknown]
  - Hypophosphataemic osteomalacia [Unknown]
  - Hypophosphataemia [Unknown]
  - Renal tubular dysfunction [Unknown]
  - Arthralgia [Unknown]
  - Rib fracture [Unknown]
